FAERS Safety Report 20029528 (Version 1)
Quarter: 2021Q4

REPORT INFORMATION
  Report Type: Spontaneous
  Country: US (occurrence: None)
  Receive Date: 20211103
  Receipt Date: 20211103
  Transmission Date: 20220304
  Serious: Yes (Other)
  Sender: FDA-Public Use
  Company Number: 2021A790157

PATIENT
  Sex: Male

DRUGS (1)
  1. BYDUREON BCISE [Suspect]
     Active Substance: EXENATIDE
     Route: 065

REACTIONS (7)
  - Blood glucose decreased [Unknown]
  - Bone disorder [Unknown]
  - Gait disturbance [Unknown]
  - Memory impairment [Unknown]
  - Dysgraphia [Unknown]
  - Fall [Unknown]
  - Product use issue [Unknown]
